FAERS Safety Report 7475450-X (Version None)
Quarter: 2011Q2

REPORT INFORMATION
  Report Type: 
  Country: None (occurrence: None)
  Receive Date: 20110512
  Receipt Date: 20110506
  Transmission Date: 20111010
  Serious: Yes (Hospitalization)
  Sender: FDA-Public Use
  Company Number: FR-PFIZER INC-2011097486

PATIENT
  Age: 47 Year
  Sex: Female

DRUGS (3)
  1. TAXOTERE [Suspect]
     Indication: CHEMOTHERAPY
     Dosage: 150 MG, SINGLE
     Route: 042
     Dates: start: 20110207, end: 20110207
  2. SOLU-MEDROL [Suspect]
     Indication: CHEMOTHERAPY
     Dosage: 80 MG, SINGLE
     Route: 042
     Dates: start: 20110207, end: 20110207
  3. PRIMPERAN TAB [Suspect]
     Indication: CHEMOTHERAPY
     Dosage: 20 MG, SINGLE
     Route: 042
     Dates: start: 20110207, end: 20110207

REACTIONS (1)
  - PALMAR-PLANTAR ERYTHRODYSAESTHESIA SYNDROME [None]
